FAERS Safety Report 9757717 (Version 1)
Quarter: 2013Q4

REPORT INFORMATION
  Report Type: Spontaneous
  Country: US (occurrence: US)
  Receive Date: 20131216
  Receipt Date: 20131216
  Transmission Date: 20140711
  Serious: Yes (Hospitalization)
  Sender: FDA-Public Use
  Company Number: US-BRISTOL-MYERS SQUIBB COMPANY-19895465

PATIENT
  Age: 70 Year
  Sex: Male

DRUGS (2)
  1. BYETTA [Suspect]
  2. COUMADIN [Concomitant]
     Indication: DEEP VEIN THROMBOSIS

REACTIONS (3)
  - Pancreatitis [Unknown]
  - Jaundice cholestatic [Unknown]
  - Pancreatic mass [Unknown]
